FAERS Safety Report 20783782 (Version 1)
Quarter: 2022Q2

REPORT INFORMATION
  Report Type: Spontaneous
  Country: GB (occurrence: GB)
  Receive Date: 20220504
  Receipt Date: 20220504
  Transmission Date: 20220721
  Serious: Yes (Other)
  Sender: FDA-Public Use
  Company Number: GB-MHRA-MED-202204081128092700-FH3KC

PATIENT
  Age: 56 Year
  Sex: Female
  Weight: 113 kg

DRUGS (10)
  1. ESTRADIOL [Suspect]
     Active Substance: ESTRADIOL
     Indication: Urinary tract infection
     Dosage: UNK
     Dates: start: 20220329, end: 20220404
  2. ACRIVASTINE [Concomitant]
     Active Substance: ACRIVASTINE
     Indication: Multiple allergies
     Dosage: UNK
  3. ACRIVASTINE [Concomitant]
     Active Substance: ACRIVASTINE
     Indication: Multiple allergies
     Route: 065
  4. AMOXICILLIN\CLAVULANIC ACID [Concomitant]
     Active Substance: AMOXICILLIN\CLAVULANIC ACID
     Indication: Cyst
     Dosage: UNK
  5. LEVOTHYROXINE [Concomitant]
     Active Substance: LEVOTHYROXINE
     Indication: Product used for unknown indication
     Dosage: UNK
  6. LEVOTHYROXINE [Concomitant]
     Active Substance: LEVOTHYROXINE
     Indication: Product used for unknown indication
     Route: 065
  7. NITROFURANTOIN [Concomitant]
     Active Substance: NITROFURANTOIN
     Indication: Urinary tract infection
     Dosage: UNK
  8. NITROFURANTOIN [Concomitant]
     Active Substance: NITROFURANTOIN
     Indication: Urinary tract infection
     Route: 065
  9. AMOXICILLIN TRIHYDRATE [Concomitant]
     Active Substance: AMOXICILLIN
     Indication: Cyst
     Route: 065
  10. CLAVULANATE POTASSIUM [Concomitant]
     Active Substance: CLAVULANATE POTASSIUM
     Indication: Cyst
     Route: 065

REACTIONS (8)
  - Palpitations [Recovering/Resolving]
  - Dysmenorrhoea [Recovering/Resolving]
  - Medication error [Unknown]
  - Off label use of device [Unknown]
  - Device use issue [Unknown]
  - Abdominal pain upper [Recovering/Resolving]
  - Vaginal discharge [Recovered/Resolved]
  - Abdominal pain lower [None]

NARRATIVE: CASE EVENT DATE: 20220404
